FAERS Safety Report 23657798 (Version 6)
Quarter: 2025Q1

REPORT INFORMATION
  Report Type: Spontaneous
  Country: DE (occurrence: DE)
  Receive Date: 20240321
  Receipt Date: 20250123
  Transmission Date: 20250408
  Serious: Yes (Death, Life-Threatening)
  Sender: JOHNSON AND JOHNSON
  Company Number: DE-JNJFOC-20240345883

PATIENT
  Age: 72 Year
  Sex: Male
  Weight: 77 kg

DRUGS (5)
  1. CARVYKTI [Suspect]
     Active Substance: CILTACABTAGENE AUTOLEUCEL
     Indication: Plasma cell myeloma
     Route: 065
     Dates: start: 20240206, end: 20240206
  2. FLUDARABINE [Concomitant]
     Active Substance: FLUDARABINE PHOSPHATE
     Indication: Lymphodepletion
     Dates: start: 20240201, end: 20240203
  3. CYCLOPHOSPHAMIDE [Concomitant]
     Active Substance: CYCLOPHOSPHAMIDE
     Indication: Lymphodepletion
     Dates: start: 20240201, end: 20240203
  4. ACETAMINOPHEN [Concomitant]
     Active Substance: ACETAMINOPHEN
     Indication: Antipyresis
     Dates: start: 20240206, end: 20240206
  5. DIMETHINDENE [Concomitant]
     Active Substance: DIMETHINDENE
     Indication: Anaphylaxis prophylaxis
     Dates: start: 20240206, end: 20240206

REACTIONS (10)
  - Cytokine release syndrome [Fatal]
  - Acute kidney injury [Fatal]
  - Haemophagocytic lymphohistiocytosis [Fatal]
  - Immune effector cell-associated neurotoxicity syndrome [Fatal]
  - Necrosis [Unknown]
  - Aortic aneurysm [Unknown]
  - Peripheral ischaemia [Unknown]
  - Hypertension [Unknown]
  - Nervous system disorder [Unknown]
  - Lymphocytosis [Unknown]

NARRATIVE: CASE EVENT DATE: 20240212
